FAERS Safety Report 9013721 (Version 1)
Quarter: 2013Q1

REPORT INFORMATION
  Report Type: Spontaneous
  Country: US (occurrence: None)
  Receive Date: 20130108
  Receipt Date: 20130108
  Transmission Date: 20140127
  Serious: No
  Sender: FDA-Public Use
  Company Number: None

PATIENT
  Age: 14 Year
  Sex: Male
  Weight: 75.3 kg

DRUGS (1)
  1. VYVANSE [Suspect]
     Dosage: TAKE 2 CAPSULES DAILY

REACTIONS (2)
  - Drug effect decreased [None]
  - Product quality issue [None]
